FAERS Safety Report 24862945 (Version 2)
Quarter: 2025Q1

REPORT INFORMATION
  Report Type: Report from Study
  Country: GR (occurrence: GR)
  Receive Date: 20250120
  Receipt Date: 20250303
  Transmission Date: 20250409
  Serious: Yes (Hospitalization, Disabling, Other)
  Sender: EMD SERONO INC
  Company Number: GR-Merck Healthcare KGaA-2025001748

PATIENT
  Age: 58 Year
  Sex: Female

DRUGS (1)
  1. REBIF [Suspect]
     Active Substance: INTERFERON BETA-1A
     Indication: Multiple sclerosis
     Dosage: FORM OF ADMIN.: CARTRIDGE
     Dates: start: 20210116

REACTIONS (2)
  - Cerebrovascular accident [Unknown]
  - Hypertension [Unknown]

NARRATIVE: CASE EVENT DATE: 20240913
